FAERS Safety Report 12484564 (Version 1)
Quarter: 2016Q2

REPORT INFORMATION
  Report Type: Spontaneous
  Country: US (occurrence: US)
  Receive Date: 20160621
  Receipt Date: 20160621
  Transmission Date: 20160815
  Serious: Yes (Other)
  Sender: FDA-Public Use
  Company Number: US-AMGEN-USASP2016076940

PATIENT
  Age: 82 Year
  Sex: Female
  Weight: 80.27 kg

DRUGS (7)
  1. LASIX [Concomitant]
     Active Substance: FUROSEMIDE
     Indication: CARDIAC FAILURE CONGESTIVE
     Dosage: 40 MG, BID
     Route: 048
  2. DULOXETINE. [Concomitant]
     Active Substance: DULOXETINE
     Indication: PAIN
  3. DIGOXIN. [Concomitant]
     Active Substance: DIGOXIN
     Indication: ATRIAL FIBRILLATION
     Dosage: 125 MCG, QD
     Route: 048
     Dates: start: 201502
  4. METOLAZONE. [Concomitant]
     Active Substance: METOLAZONE
     Dosage: 1.25 MG, QD
     Route: 048
  5. DULOXETINE. [Concomitant]
     Active Substance: DULOXETINE
     Indication: DEPRESSION
     Dosage: 60 MG, QD
     Route: 048
  6. POTASSIUM [Concomitant]
     Active Substance: POTASSIUM
     Dosage: 20 MEQ, BID
     Route: 048
  7. PROCRIT [Suspect]
     Active Substance: ERYTHROPOIETIN
     Indication: MYELODYSPLASTIC SYNDROME
     Dosage: 40000 ML, QWK
     Route: 058
     Dates: start: 20160606

REACTIONS (8)
  - Rapid eye movements sleep abnormal [Unknown]
  - Dementia [Not Recovered/Not Resolved]
  - Myalgia [Not Recovered/Not Resolved]
  - Fear [Not Recovered/Not Resolved]
  - Agitation [Not Recovered/Not Resolved]
  - Psychotic disorder [Recovering/Resolving]
  - Insomnia [Not Recovered/Not Resolved]
  - Depression [Not Recovered/Not Resolved]

NARRATIVE: CASE EVENT DATE: 201606
